FAERS Safety Report 6527359-3 (Version None)
Quarter: 2010Q1

REPORT INFORMATION
  Report Type: 
  Country: None (occurrence: None)
  Receive Date: 20100104
  Receipt Date: 20100104
  Transmission Date: 20100710
  Serious: Yes (Hospitalization)
  Sender: FDA-Public Use
  Company Number: None

PATIENT
  Age: 38 Year
  Sex: Female
  Weight: 64.4108 kg

DRUGS (1)
  1. LUBIPROSTONE 24MCG SUCAMPO PHARMACEUTICALS [Suspect]

REACTIONS (1)
  - CHEST PAIN [None]
